FAERS Safety Report 19422148 (Version 2)
Quarter: 2021Q2

REPORT INFORMATION
  Report Type: Spontaneous
  Country: US (occurrence: US)
  Receive Date: 20210616
  Receipt Date: 20210625
  Transmission Date: 20210717
  Serious: Yes (Death, Hospitalization, Other)
  Sender: FDA-Public Use
  Company Number: US-ASTRAZENECA-2021A511210

PATIENT
  Age: 20258 Day
  Sex: Male
  Weight: 93 kg

DRUGS (6)
  1. DILAUDID [Concomitant]
     Active Substance: HYDROMORPHONE HYDROCHLORIDE
  2. OXYCODONE [Concomitant]
     Active Substance: OXYCODONE
  3. IMFINZI [Suspect]
     Active Substance: DURVALUMAB
     Indication: SMALL CELL LUNG CANCER
     Route: 042
  4. PRILOSEC [Concomitant]
     Active Substance: OMEPRAZOLE MAGNESIUM
  5. SOLU?MEDROL [Concomitant]
     Active Substance: METHYLPREDNISOLONE SODIUM SUCCINATE
  6. CLARITIN [Concomitant]
     Active Substance: LORATADINE

REACTIONS (7)
  - Death [Fatal]
  - Weight decreased [Unknown]
  - Metabolic encephalopathy [Unknown]
  - Confusional state [Not Recovered/Not Resolved]
  - Pain [Unknown]
  - Laboratory test abnormal [Unknown]
  - Hepatic enzyme increased [Unknown]

NARRATIVE: CASE EVENT DATE: 20210613
